FAERS Safety Report 6135613-2 (Version None)
Quarter: 2009Q1

REPORT INFORMATION
  Report Type: 
  Country: None (occurrence: None)
  Receive Date: 20090327
  Receipt Date: 20090324
  Transmission Date: 20090719
  Serious: Yes (Hospitalization)
  Sender: FDA-Public Use
  Company Number: KR-JNJFOC-20090306235

PATIENT
  Age: 57 Year
  Sex: Female

DRUGS (4)
  1. TYLENOL (CAPLET) [Suspect]
     Route: 048
  2. TYLENOL (CAPLET) [Suspect]
     Indication: PHARYNGITIS
     Route: 048
  3. UNSPECIFIED HORMONE [Concomitant]
     Indication: HORMONE THERAPY
     Route: 048
  4. DIGESTION MEDICATION [Concomitant]

REACTIONS (6)
  - BREATH ODOUR [None]
  - FOREIGN BODY TRAUMA [None]
  - LOCAL SWELLING [None]
  - NOCTURNAL DYSPNOEA [None]
  - OROPHARYNGEAL PAIN [None]
  - PHARYNGITIS [None]
